FAERS Safety Report 8615291-0 (Version None)
Quarter: 2012Q3

REPORT INFORMATION
  Report Type: 
  Country: None (occurrence: None)
  Receive Date: 20120815
  Receipt Date: 20120815
  Transmission Date: 20120928
  Serious: Yes (Other)
  Sender: FDA-Public Use
  Company Number: None

PATIENT
  Sex: Male
  Weight: 133.8111 kg

DRUGS (4)
  1. AMBIEN [Concomitant]
  2. FENTANYL [Suspect]
     Indication: BACK PAIN
     Dosage: 50 MCG/HR 3 DAY PATCH TRANSDERMAL
     Route: 062
     Dates: start: 20120720, end: 20120723
  3. OXYCODONE HCL [Concomitant]
  4. LORAZEPAM [Concomitant]

REACTIONS (7)
  - HEADACHE [None]
  - DRUG INTERACTION [None]
  - TACHYCARDIA [None]
  - PANIC ATTACK [None]
  - DIZZINESS [None]
  - HYPERHIDROSIS [None]
  - BALANCE DISORDER [None]
